FAERS Safety Report 5371794-6 (Version None)
Quarter: 2007Q2

REPORT INFORMATION
  Report Type: 
  Country: None (occurrence: None)
  Receive Date: 20070625
  Receipt Date: 20070613
  Transmission Date: 20071010
  Serious: Yes (Other)
  Sender: FDA-Public Use
  Company Number: 2007SP012160

PATIENT
  Age: 67 Year
  Sex: Female

DRUGS (1)
  1. LORATADINE WITH PSEUDOEPHEDRINE (LORATADINE W/PSEUDOEPHEDRINE) [Suspect]
     Indication: INFECTION

REACTIONS (7)
  - ANAPHYLACTIC REACTION [None]
  - ANGIOEDEMA [None]
  - DRUG HYPERSENSITIVITY [None]
  - NAUSEA [None]
  - RASH ERYTHEMATOUS [None]
  - RASH PRURITIC [None]
  - VOMITING [None]
